FAERS Safety Report 7261087-4 (Version None)
Quarter: 2011Q1

REPORT INFORMATION
  Report Type: 
  Country: None (occurrence: None)
  Receive Date: 20110130
  Receipt Date: 20101228
  Transmission Date: 20110831
  Serious: No
  Sender: FDA-Public Use
  Company Number: US-ABBOTT-10P-163-0694236-00

PATIENT
  Sex: Female
  Weight: 104.87 kg

DRUGS (12)
  1. HUMIRA [Suspect]
     Route: 058
  2. PREDNISONE [Suspect]
     Indication: CROHN'S DISEASE
     Dates: start: 20090301
  3. DIOVAN [Concomitant]
     Indication: HYPERTENSION
  4. BFL3 PROBIOTIC [Concomitant]
     Indication: PRODUCT USED FOR UNKNOWN INDICATION
     Route: 048
  5. PRILOSEC OTC [Concomitant]
     Indication: GASTRIC DISORDER
  6. HUMIRA [Suspect]
     Indication: CROHN'S DISEASE
     Route: 058
  7. PREMARIN [Concomitant]
     Indication: PRODUCT USED FOR UNKNOWN INDICATION
     Dosage: UNKNOWN LOW DOSE
  8. POTASSIUM [Concomitant]
     Indication: PRODUCT USED FOR UNKNOWN INDICATION
     Route: 048
  9. TRAMADOL HCL [Concomitant]
     Indication: PAIN
  10. SYNTHROID [Concomitant]
     Indication: HYPOTHYROIDISM
     Dosage: UNKNOWN DOSES IN AM
  11. FELODIPINE [Concomitant]
     Indication: HYPERTENSION
  12. LASIX [Concomitant]
     Indication: DIURETIC THERAPY
     Route: 048

REACTIONS (5)
  - CONTUSION [None]
  - DRUG INEFFECTIVE [None]
  - WEIGHT INCREASED [None]
  - FALL [None]
  - LIMB INJURY [None]
